FAERS Safety Report 22825674 (Version 3)
Quarter: 2023Q4

REPORT INFORMATION
  Report Type: Report from Study
  Country: CO (occurrence: CO)
  Receive Date: 20230816
  Receipt Date: 20231101
  Transmission Date: 20240110
  Serious: Yes (Hospitalization)
  Sender: FDA-Public Use
  Company Number: CO-ABBVIE-5367323

PATIENT
  Sex: Female
  Weight: 57 kg

DRUGS (4)
  1. ZEMPLAR [Suspect]
     Active Substance: PARICALCITOL
     Indication: Hyperparathyroidism secondary
     Dosage: FORM STRENGTH: 2 MICROGRAM
     Route: 048
     Dates: start: 20180917, end: 20230811
  2. ZEMPLAR [Suspect]
     Active Substance: PARICALCITOL
     Indication: Hyperparathyroidism secondary
     Dosage: FORM STRENGTH: 2 MICROGRAM?CAPSULES?THERAPY START DATE 2023
     Route: 048
  3. AMLODIPINE [Concomitant]
     Active Substance: AMLODIPINE BESYLATE
     Indication: Hypertension
     Dates: end: 20230810
  4. LOSARTAN [Concomitant]
     Active Substance: LOSARTAN
     Indication: Hypertension
     Route: 048
     Dates: end: 20230810

REACTIONS (11)
  - Urinary tract infection [Recovered/Resolved]
  - Pain in extremity [Recovering/Resolving]
  - Blood creatinine abnormal [Recovered/Resolved]
  - Hypertension [Recovering/Resolving]
  - Immune system disorder [Recovered/Resolved]
  - Dizziness [Recovered/Resolved]
  - Inflammation [Not Recovered/Not Resolved]
  - Pain [Recovered/Resolved]
  - Urinary incontinence [Recovered/Resolved]
  - Weight decreased [Recovering/Resolving]
  - Decreased appetite [Recovering/Resolving]

NARRATIVE: CASE EVENT DATE: 20230101
